FAERS Safety Report 8470171-9 (Version None)
Quarter: 2012Q2

REPORT INFORMATION
  Report Type: 
  Country: None (occurrence: None)
  Receive Date: 20120621
  Receipt Date: 20120621
  Transmission Date: 20120825
  Serious: Yes (Disabling)
  Sender: FDA-Public Use
  Company Number: None

PATIENT
  Age: 46 Year
  Sex: Female
  Weight: 71.6683 kg

DRUGS (1)
  1. ZICAM NASAL SWABS [Suspect]
     Indication: NASOPHARYNGITIS
     Dosage: 1 SWAB 2 TIMES/DAY NASAL
     Route: 045
     Dates: start: 20101217, end: 20101224

REACTIONS (2)
  - PRODUCT QUALITY ISSUE [None]
  - ANOSMIA [None]
